FAERS Safety Report 8969218 (Version 1)
Quarter: 2012Q4

REPORT INFORMATION
  Report Type: 
  Country: US (occurrence: US)
  Receive Date: 20121218
  Receipt Date: 20121218
  Transmission Date: 20130627
  Serious: No
  Sender: FDA-Public Use
  Company Number: US-BRISTOL-MYERS SQUIBB COMPANY-16317083

PATIENT
  Age: 22 Year
  Sex: Male

DRUGS (3)
  1. ABILIFY [Suspect]
     Indication: DEPRESSION
     Dosage: At morning
     Route: 048
     Dates: start: 20111219
  2. ABILIFY [Suspect]
     Indication: BIPOLAR DISORDER
     Dosage: At morning
     Route: 048
     Dates: start: 20111219
  3. ZONEGRAN [Suspect]
     Indication: CONVULSION

REACTIONS (6)
  - Dizziness [Not Recovered/Not Resolved]
  - Malaise [Unknown]
  - Headache [Unknown]
  - Feeling abnormal [Unknown]
  - Dysgeusia [Unknown]
  - Abdominal discomfort [Recovered/Resolved]
